FAERS Safety Report 8937928 (Version 3)
Quarter: 2013Q2

REPORT INFORMATION
  Report Type: Report from Study
  Country: US (occurrence: US)
  Receive Date: 20121203
  Receipt Date: 20130620
  Transmission Date: 20140414
  Serious: Yes (Hospitalization, Other)
  Sender: FDA-Public Use
  Company Number: US-ELI_LILLY_AND_COMPANY-US201211006413

PATIENT
  Sex: Female

DRUGS (2)
  1. SOMATROPIN [Suspect]
     Indication: DWARFISM
     Dosage: 0.7 MG, QD
     Dates: end: 2010
  2. SOMATROPIN [Suspect]
     Dosage: 0.7 MG, QD

REACTIONS (5)
  - Blindness [Unknown]
  - Optic nerve infarction [Unknown]
  - Optic neuritis [Unknown]
  - Psychotic disorder [Unknown]
  - Ovarian cyst [Unknown]
